FAERS Safety Report 9691081 (Version 8)
Quarter: 2014Q1

REPORT INFORMATION
  Report Type: Report from Study
  Country: US (occurrence: US)
  Receive Date: 20131115
  Receipt Date: 20140110
  Transmission Date: 20141002
  Serious: Yes (Other)
  Sender: FDA-Public Use
  Company Number: US-ACTELION-A-US2013-88937

PATIENT
  Age: 50 Year
  Sex: Female

DRUGS (4)
  1. VENTAVIS [Suspect]
     Indication: COR PULMONALE CHRONIC
     Dosage: UNK
     Route: 055
  2. LETAIRIS [Suspect]
     Dosage: 10 MG, OD
  3. REVATIO [Concomitant]
  4. OXYGEN [Concomitant]

REACTIONS (15)
  - Chronic obstructive pulmonary disease [Unknown]
  - Cough [Unknown]
  - Oxygen saturation decreased [Unknown]
  - Dyspnoea [Unknown]
  - General physical health deterioration [Unknown]
  - Pulmonary arterial hypertension [Unknown]
  - Flushing [Unknown]
  - Headache [Recovered/Resolved]
  - Influenza like illness [Unknown]
  - No therapeutic response [Unknown]
  - Asthenia [Unknown]
  - Fatigue [Unknown]
  - Malaise [Unknown]
  - Retching [Unknown]
  - Nasopharyngitis [Unknown]
